FAERS Safety Report 7716319-2 (Version None)
Quarter: 2011Q3

REPORT INFORMATION
  Report Type: 
  Country: None (occurrence: None)
  Receive Date: 20110816
  Receipt Date: 20101013
  Transmission Date: 20111222
  Serious: Yes (Hospitalization)
  Sender: FDA-Public Use
  Company Number: 10US001392

PATIENT
  Sex: Female

DRUGS (1)
  1. PEXEVA [Suspect]
     Indication: DEPRESSION
     Dosage: 20 MG, QD, ORAL
     Route: 048
     Dates: start: 20100301

REACTIONS (7)
  - FEELING ABNORMAL [None]
  - DIZZINESS [None]
  - SUICIDAL IDEATION [None]
  - HAEMATOCHEZIA [None]
  - DRUG INEFFECTIVE [None]
  - TEARFULNESS [None]
  - HYPERHIDROSIS [None]
